FAERS Safety Report 24043247 (Version 1)
Quarter: 2024Q3

REPORT INFORMATION
  Report Type: Spontaneous
  Country: GB (occurrence: GB)
  Receive Date: 20240702
  Receipt Date: 20240702
  Transmission Date: 20241017
  Serious: Yes (Other)
  Sender: ABBVIE
  Company Number: None

PATIENT
  Age: 25 Year
  Sex: Female

DRUGS (5)
  1. UPADACITINIB [Suspect]
     Active Substance: UPADACITINIB
     Indication: Product used for unknown indication
     Route: 048
  2. Salofalk [Concomitant]
     Indication: Product used for unknown indication
  3. Salofalk [Concomitant]
     Indication: Product used for unknown indication
     Dosage: 2G/59ML ENEMA
     Route: 054
  4. HYDROXOCOBALAMIN [Concomitant]
     Active Substance: HYDROXOCOBALAMIN
     Indication: Product used for unknown indication
     Dosage: 1MG/1ML
  5. AMITRIPTYLINE [Concomitant]
     Active Substance: AMITRIPTYLINE
     Indication: Product used for unknown indication
     Dosage: AT NIGHT
     Route: 048

REACTIONS (3)
  - Myalgia [Unknown]
  - Drug ineffective [Unknown]
  - Blood creatine phosphokinase increased [Unknown]
